FAERS Safety Report 10181456 (Version 2)
Quarter: 2014Q2

REPORT INFORMATION
  Report Type: Spontaneous
  Country: DE (occurrence: DE)
  Receive Date: 20140519
  Receipt Date: 20140527
  Transmission Date: 20141212
  Serious: Yes (Other)
  Sender: FDA-Public Use
  Company Number: DE-GILEAD-2014-0102711

PATIENT
  Age: 71 Year
  Sex: Male
  Weight: 84 kg

DRUGS (20)
  1. SOVALDI [Suspect]
     Indication: HEPATITIS C
     Dosage: 400 MG, QD
     Route: 048
     Dates: start: 20140131, end: 20140424
  2. PEGASYS [Suspect]
     Indication: HEPATITIS C
     Dosage: 180 ?G, Q1WK
     Route: 058
     Dates: start: 20140131, end: 20140131
  3. PEGASYS [Suspect]
     Dosage: 135 ?G, UNK
     Route: 058
     Dates: start: 20140207, end: 20140418
  4. PEGASYS [Suspect]
     Dosage: 180 ?G, Q1WK
     Route: 058
  5. COPEGUS [Suspect]
     Indication: HEPATITIS C
     Dosage: 1200 MG, UNK
     Route: 048
     Dates: start: 20140131, end: 20140212
  6. COPEGUS [Suspect]
     Dosage: 1000 MG, UNK
     Route: 048
     Dates: start: 20140213, end: 20140219
  7. COPEGUS [Suspect]
     Dosage: 800 MG, UNK
     Route: 048
     Dates: start: 20140220, end: 20140226
  8. COPEGUS [Suspect]
     Dosage: 400 MG, UNK
     Route: 048
     Dates: start: 20140227, end: 20140424
  9. KIVEXA [Concomitant]
     Dosage: UNK, QD
  10. ISENTRESS [Concomitant]
     Dosage: 1 DF, BID
  11. ASS [Concomitant]
     Dosage: 1 DF, QD
  12. RAMIPRIL [Concomitant]
     Dosage: 25 MG, QD
  13. PRAVASTATIN [Concomitant]
     Dosage: 20 MG, QD
  14. BISOPROLOL [Concomitant]
     Dosage: 2.5 MG, QD
  15. PANTOPRAZOL [Concomitant]
     Dosage: 40 MG, BID
  16. TAMSULOSIN [Concomitant]
     Dosage: 0.4 DF, QD
  17. PRAMIPEXOL [Concomitant]
     Dosage: 0.35 DF, BID
  18. CITALOPRAM [Concomitant]
     Dosage: 20 MG, QD
  19. HYDROMORPHONE [Concomitant]
     Dosage: 8 MG, BID
  20. TRAZODONE [Concomitant]
     Dosage: 50 MG, QD

REACTIONS (3)
  - Thrombocytopenia [Unknown]
  - Neutropenia [Unknown]
  - Anaemia [Recovering/Resolving]
